FAERS Safety Report 15408100 (Version 2)
Quarter: 2018Q4

REPORT INFORMATION
  Report Type: Report from Study
  Country: IT (occurrence: IT)
  Receive Date: 20180920
  Receipt Date: 20181121
  Transmission Date: 20190204
  Serious: Yes (Hospitalization)
  Sender: FDA-Public Use
  Company Number: IT-TEVA-2018-IT-956706

PATIENT
  Age: 76 Year
  Sex: Female

DRUGS (9)
  1. PANTORC 20 MG COMPRESSE GASTRORESISTENTI [Concomitant]
     Active Substance: PANTOPRAZOLE SODIUM
     Route: 065
  2. LENTO-KALIUM? [Concomitant]
     Route: 065
  3. TAREG 160 MG COMPRESSE RIVESTITE CON FILM [Concomitant]
     Route: 065
  4. OLANZAPINA EG 5 MG COMPRESSE RIVESTITE CON FILM [Suspect]
     Active Substance: OLANZAPINE
     Indication: DEPRESSION
     Dosage: 2 DOSAGE FORMS DAILY;
     Route: 048
     Dates: start: 20180701, end: 20180716
  5. TIMOPTOL 0,25% COLLIRIO, SOLUZIONE [Concomitant]
     Route: 065
  6. CARDICOR 1,25 MG COMPRESSE RIVESTITE CON FILM [Concomitant]
     Route: 065
  7. HALCION [Concomitant]
     Active Substance: TRIAZOLAM
     Route: 065
  8. TAPAZOLE [Concomitant]
     Active Substance: METHIMAZOLE
     Route: 065
  9. XANAX [Concomitant]
     Active Substance: ALPRAZOLAM
     Route: 065

REACTIONS (4)
  - Decreased appetite [Recovering/Resolving]
  - Dyspnoea [Recovering/Resolving]
  - Asthenia [Recovering/Resolving]
  - Panic attack [Recovering/Resolving]

NARRATIVE: CASE EVENT DATE: 20180716
